FAERS Safety Report 12100644 (Version 1)
Quarter: 2016Q1

REPORT INFORMATION
  Report Type: Spontaneous
  Country: IT (occurrence: IT)
  Receive Date: 20160222
  Receipt Date: 20160222
  Transmission Date: 20160526
  Serious: Yes (Other)
  Sender: FDA-Public Use
  Company Number: IT-MYLANLABS-2016M1006450

PATIENT

DRUGS (3)
  1. DIAZEPAM. [Interacting]
     Active Substance: DIAZEPAM
     Indication: SLEEP DISORDER
     Dosage: 10 GTT, UNK
     Route: 048
  2. DICLOFENAC [Concomitant]
     Active Substance: DICLOFENAC
     Indication: PAIN
     Dosage: 50 MG, BID
     Route: 048
  3. CIPROFLOXACIN. [Suspect]
     Active Substance: CIPROFLOXACIN
     Indication: OTITIS EXTERNA
     Dosage: 500 MG, BID
     Route: 048

REACTIONS (5)
  - Drug interaction [Unknown]
  - Asthenia [Unknown]
  - Depressed level of consciousness [Unknown]
  - Headache [Unknown]
  - Antibiotic level above therapeutic [Unknown]
